FAERS Safety Report 21775074 (Version 1)
Quarter: 2022Q4

REPORT INFORMATION
  Report Type: Spontaneous
  Country: US (occurrence: None)
  Receive Date: 20221225
  Receipt Date: 20221225
  Transmission Date: 20230112
  Serious: No
  Sender: FDA-Public Use
  Company Number: 2022A399010

PATIENT
  Age: 637 Month
  Sex: Male
  Weight: 94.3 kg

DRUGS (7)
  1. BUDESONIDE\FORMOTEROL\GLYCOPYRRONIUM [Suspect]
     Active Substance: BUDESONIDE\FORMOTEROL\GLYCOPYRRONIUM
     Indication: Pulmonary fibrosis
     Dosage: 160/9/4.8MCG 1 PUFFS TWICE A DAY 160UG/MG TWO TIMES A DAY
     Route: 055
     Dates: start: 2021
  2. BUDESONIDE\FORMOTEROL\GLYCOPYRRONIUM [Suspect]
     Active Substance: BUDESONIDE\FORMOTEROL\GLYCOPYRRONIUM
     Indication: Pneumonia
     Dosage: 160/9/4.8MCG 1 PUFFS TWICE A DAY 160UG/MG TWO TIMES A DAY
     Route: 055
     Dates: start: 2021
  3. BUDESONIDE\FORMOTEROL\GLYCOPYRRONIUM [Suspect]
     Active Substance: BUDESONIDE\FORMOTEROL\GLYCOPYRRONIUM
     Indication: Dyspnoea
     Dosage: 160/9/4.8MCG 1 PUFFS TWICE A DAY 160UG/MG TWO TIMES A DAY
     Route: 055
     Dates: start: 2021
  4. BUDESONIDE\FORMOTEROL\GLYCOPYRRONIUM [Suspect]
     Active Substance: BUDESONIDE\FORMOTEROL\GLYCOPYRRONIUM
     Indication: Pulmonary fibrosis
     Dosage: 2 PUFFS TWICE A DAY, BUT THE DOSE WAS DECREASED TO 1 PUFF TWICE A DAY
     Route: 055
     Dates: start: 202205, end: 202206
  5. BUDESONIDE\FORMOTEROL\GLYCOPYRRONIUM [Suspect]
     Active Substance: BUDESONIDE\FORMOTEROL\GLYCOPYRRONIUM
     Indication: Pneumonia
     Dosage: 2 PUFFS TWICE A DAY, BUT THE DOSE WAS DECREASED TO 1 PUFF TWICE A DAY
     Route: 055
     Dates: start: 202205, end: 202206
  6. BUDESONIDE\FORMOTEROL\GLYCOPYRRONIUM [Suspect]
     Active Substance: BUDESONIDE\FORMOTEROL\GLYCOPYRRONIUM
     Indication: Dyspnoea
     Dosage: 2 PUFFS TWICE A DAY, BUT THE DOSE WAS DECREASED TO 1 PUFF TWICE A DAY
     Route: 055
     Dates: start: 202205, end: 202206
  7. OFEV [Concomitant]
     Active Substance: NINTEDANIB

REACTIONS (5)
  - Dyspnoea [Unknown]
  - Wrong technique in device usage process [Unknown]
  - Product use issue [Unknown]
  - Device use issue [Unknown]
  - Device delivery system issue [Unknown]

NARRATIVE: CASE EVENT DATE: 20221101
